FAERS Safety Report 7096867-1 (Version None)
Quarter: 2010Q4

REPORT INFORMATION
  Report Type: 
  Country: None (occurrence: None)
  Receive Date: 20101103
  Receipt Date: 20101018
  Transmission Date: 20110411
  Serious: Yes (Death)
  Sender: FDA-Public Use
  Company Number: 2009002840

PATIENT
  Age: 77 Year
  Sex: Male
  Weight: 63 kg

DRUGS (12)
  1. ERLOTINIB HYDROCHLORIDE [Suspect]
     Indication: LUNG ADENOCARCINOMA
     Dosage: (150 MG, QD), ORAL
     Route: 048
     Dates: start: 20090513, end: 20090518
  2. NORVASC [Concomitant]
  3. DIGOXIN [Concomitant]
  4. ALLOPURINOL [Concomitant]
  5. DISOPYRAMIDE [Concomitant]
  6. VALSARTAN [Concomitant]
  7. HARNAL (TAMSULOSIN HYDROCHLORIDE) [Concomitant]
  8. LIPITOR [Concomitant]
  9. FAMOTIDINE [Concomitant]
  10. LASIX [Concomitant]
  11. CLARITHROMYCIN [Concomitant]
  12. WARFARIN (WARFARIN) [Concomitant]

REACTIONS (12)
  - DISEASE PROGRESSION [None]
  - DISEASE RECURRENCE [None]
  - DRUG EFFECT DECREASED [None]
  - DYSPNOEA [None]
  - GENERAL PHYSICAL CONDITION ABNORMAL [None]
  - LUNG DISORDER [None]
  - MALIGNANT PLEURAL EFFUSION [None]
  - METASTASIS [None]
  - PNEUMONIA BACTERIAL [None]
  - RENAL IMPAIRMENT [None]
  - STAPHYLOCOCCAL INFECTION [None]
  - TREATMENT FAILURE [None]
